FAERS Safety Report 19905029 (Version 1)
Quarter: 2021Q3

REPORT INFORMATION
  Report Type: Spontaneous
  Country: US (occurrence: US)
  Receive Date: 20210930
  Receipt Date: 20210930
  Transmission Date: 20211014
  Serious: Yes (Other)
  Sender: FDA-Public Use
  Company Number: None

PATIENT
  Age: 52 Year
  Sex: Female
  Weight: 56.25 kg

DRUGS (2)
  1. ESOMEPRAZOLE ESTRADIOL [Concomitant]
  2. LEXISCAN [Suspect]
     Active Substance: REGADENOSON
     Indication: CARDIAC STRESS TEST

REACTIONS (3)
  - Musculoskeletal stiffness [None]
  - Chest discomfort [None]
  - Muscle spasms [None]

NARRATIVE: CASE EVENT DATE: 20210519
